FAERS Safety Report 22103609 (Version 1)
Quarter: 2023Q1

REPORT INFORMATION
  Report Type: Spontaneous
  Country: CN (occurrence: CN)
  Receive Date: 20230316
  Receipt Date: 20230316
  Transmission Date: 20230418
  Serious: Yes (Other)
  Sender: FDA-Public Use
  Company Number: CN-PFIZER INC-PV202300050267

PATIENT
  Age: 52 Year
  Sex: Female
  Weight: 58 kg

DRUGS (10)
  1. EPIRUBICIN [Suspect]
     Active Substance: EPIRUBICIN
     Indication: Breast cancer
     Dosage: 140 MG (+0.9% SODIUM CHLORIDE INJECTION 100 ML), 1X/DAY
     Route: 041
     Dates: start: 20230304, end: 20230304
  2. CYCLOPHOSPHAMIDE [Suspect]
     Active Substance: CYCLOPHOSPHAMIDE
     Indication: Breast cancer
     Dosage: 0.85 G (0.9% SODIUM CHLORIDE INJECTION 100 ML), 1X/DAY
     Route: 041
     Dates: start: 20230304, end: 20230304
  3. SODIUM CHLORIDE [Concomitant]
     Active Substance: SODIUM CHLORIDE
     Indication: Vehicle solution use
     Dosage: 100 ML, 1X/DAY (FOR EPIRUBICIN HCL)
     Route: 041
     Dates: start: 20230304, end: 20230304
  4. SODIUM CHLORIDE [Concomitant]
     Active Substance: SODIUM CHLORIDE
     Dosage: 100 ML, 1X/DAY (FOR CYCLOPHOSPHAMIDE)
     Route: 041
     Dates: start: 20230304, end: 20230304
  5. SODIUM CHLORIDE [Concomitant]
     Active Substance: SODIUM CHLORIDE
     Dosage: 100 ML (FOR OMEPRAZOLE, BEFORE CHEMOTHERAPY)
     Dates: start: 20230304, end: 20230304
  6. SODIUM CHLORIDE [Concomitant]
     Active Substance: SODIUM CHLORIDE
     Dosage: 5 ML (FOR TROPISETRON, BEFORE CHEMOTHERAPY)
     Route: 040
     Dates: start: 20230304, end: 20230304
  7. SODIUM CHLORIDE [Concomitant]
     Active Substance: SODIUM CHLORIDE
     Dosage: 5 ML (FOR TROPISETRON, AFTER CHEMOTHERAPY)
     Dates: start: 20230304, end: 20230304
  8. OMEPRAZOLE [Concomitant]
     Active Substance: OMEPRAZOLE
     Indication: Prophylaxis
     Dosage: 40 MG (+0.9% SODIUM CHLORIDE 100 ML)
  9. TROPISETRON [Concomitant]
     Active Substance: TROPISETRON
     Dosage: 5 MG (+0.9% SODIUM CHLORIDE 5ML)
     Route: 040
  10. DEXAMETHASONE [Concomitant]
     Active Substance: DEXAMETHASONE
     Indication: Prophylaxis
     Dosage: 5 MG
     Route: 040

REACTIONS (4)
  - Nausea [Recovering/Resolving]
  - Vomiting [Recovering/Resolving]
  - Initial insomnia [Recovering/Resolving]
  - Abdominal discomfort [Unknown]

NARRATIVE: CASE EVENT DATE: 20230304
